FAERS Safety Report 4351040-2 (Version None)
Quarter: 2004Q2

REPORT INFORMATION
  Report Type: 
  Country: None (occurrence: None)
  Receive Date: 20040428
  Receipt Date: 20040420
  Transmission Date: 20050107
  Serious: Yes (Death)
  Sender: FDA-Public Use
  Company Number: US-JNJFOC-20040202650

PATIENT
  Age: 91 Year
  Sex: Male

DRUGS (1)
  1. RISPERDAL [Suspect]
     Indication: DEMENTIA
     Dosage: 1 MG, ORAL
     Route: 048
     Dates: start: 20030101, end: 20031101

REACTIONS (1)
  - PNEUMONIA [None]
